FAERS Safety Report 6050465-7 (Version None)
Quarter: 2009Q1

REPORT INFORMATION
  Report Type: 
  Country: None (occurrence: None)
  Receive Date: 20090126
  Receipt Date: 20090114
  Transmission Date: 20090719
  Serious: Yes (Hospitalization, Other)
  Sender: FDA-Public Use
  Company Number: PHHY2008JP32012

PATIENT
  Age: 68 Year
  Sex: Female

DRUGS (15)
  1. TEGRETOL [Suspect]
     Indication: TRIGEMINAL NEURALGIA
     Dosage: 50 MG, BID
     Route: 048
     Dates: start: 20071015, end: 20071120
  2. DEPAS [Concomitant]
     Indication: DEPRESSION
     Dosage: 1 MG
     Route: 048
     Dates: start: 20060620
  3. ASPIRIN [Concomitant]
     Indication: CEREBRAL INFARCTION
     Dosage: 100MG
     Route: 048
     Dates: start: 20071015
  4. PAXIL [Concomitant]
     Indication: DEPRESSION
     Dosage: 2.5MG
     Route: 048
  5. PAXIL [Concomitant]
     Dosage: 5MG
     Route: 048
  6. PAXIL [Concomitant]
     Dosage: 7.5MG
     Route: 048
  7. PAXIL [Concomitant]
     Dosage: 10MG
     Route: 048
  8. PAXIL [Concomitant]
     Dosage: 12.5MG
     Route: 048
  9. PAXIL [Concomitant]
     Dosage: 15MG
     Route: 048
  10. PAXIL [Concomitant]
     Dosage: 17.5MG
     Route: 048
  11. PAXIL [Concomitant]
     Dosage: 20MG
     Route: 048
  12. PAXIL [Concomitant]
     Dosage: 22.5MG
     Route: 048
  13. PAXIL [Concomitant]
     Dosage: 25MG
     Route: 048
  14. PAXIL [Concomitant]
     Dosage: 30MG
     Route: 048
  15. PAXIL [Concomitant]
     Dosage: 25MG
     Route: 048

REACTIONS (14)
  - ALANINE AMINOTRANSFERASE INCREASED [None]
  - ARTHROPOD STING [None]
  - BLOOD LACTATE DEHYDROGENASE INCREASED [None]
  - C-REACTIVE PROTEIN INCREASED [None]
  - ERYTHEMA [None]
  - HERPES SIMPLEX [None]
  - OCULOMUCOCUTANEOUS SYNDROME [None]
  - ORAL PAIN [None]
  - PIGMENTATION DISORDER [None]
  - PURPURA [None]
  - PYREXIA [None]
  - RASH [None]
  - SKIN EXFOLIATION [None]
  - SKIN TEST POSITIVE [None]
